FAERS Safety Report 21033352 (Version 1)
Quarter: 2022Q3

REPORT INFORMATION
  Report Type: Spontaneous
  Country: US (occurrence: US)
  Receive Date: 20220701
  Receipt Date: 20220701
  Transmission Date: 20221026
  Serious: Yes (Hospitalization, Other)
  Sender: FDA-Public Use
  Company Number: US-MLMSERVICE-20220620-3625100-1

PATIENT
  Age: 32 Year
  Sex: Female

DRUGS (33)
  1. HYDROCORTISONE [Suspect]
     Active Substance: HYDROCORTISONE
     Indication: Nervous system disorder
     Dosage: EVERY TWO WEEKS FOR FIVE CYCLES
     Route: 065
     Dates: start: 202001, end: 2020
  2. HYDROCORTISONE [Suspect]
     Active Substance: HYDROCORTISONE
     Dosage: RESUMED
     Route: 065
     Dates: start: 202007
  3. DEXAMETHASONE [Suspect]
     Active Substance: DEXAMETHASONE
     Indication: B precursor type acute leukaemia
     Route: 065
     Dates: start: 201904, end: 2019
  4. DEXAMETHASONE [Suspect]
     Active Substance: DEXAMETHASONE
     Dosage: CYCLE 3 PART A WAS INTERRUPTED
     Route: 065
     Dates: start: 202102, end: 202105
  5. DEXAMETHASONE [Suspect]
     Active Substance: DEXAMETHASONE
     Dosage: COMPLETED CYCLE 3, PART B
     Route: 065
     Dates: start: 2021, end: 202106
  6. DEXAMETHASONE [Suspect]
     Active Substance: DEXAMETHASONE
     Dosage: HYPER-CVAD CYCLE 4 PART B
     Route: 065
     Dates: start: 202107, end: 202107
  7. ADRIAMYCIN [Suspect]
     Active Substance: DOXORUBICIN HYDROCHLORIDE
     Indication: B precursor type acute leukaemia
     Route: 065
     Dates: start: 201904, end: 2019
  8. ADRIAMYCIN [Suspect]
     Active Substance: DOXORUBICIN HYDROCHLORIDE
     Dosage: CYCLE 3 PART A WAS INTERRUPTED
     Route: 065
     Dates: start: 202102, end: 202105
  9. ADRIAMYCIN [Suspect]
     Active Substance: DOXORUBICIN HYDROCHLORIDE
     Dosage: COMPLETED CYCLE 3, PART B
     Route: 065
     Dates: start: 2021, end: 202106
  10. ADRIAMYCIN [Suspect]
     Active Substance: DOXORUBICIN HYDROCHLORIDE
     Dosage: HYPER-CVAD CYCLE 4-PART B
     Route: 065
     Dates: start: 202107, end: 202107
  11. VINCRISTINE SULFATE [Suspect]
     Active Substance: VINCRISTINE SULFATE
     Indication: B precursor type acute leukaemia
     Route: 065
     Dates: start: 201904, end: 2019
  12. VINCRISTINE SULFATE [Suspect]
     Active Substance: VINCRISTINE SULFATE
     Dosage: CYCLE 3 PART A WAS INTERRUPTED
     Route: 065
     Dates: start: 202102, end: 202105
  13. VINCRISTINE SULFATE [Suspect]
     Active Substance: VINCRISTINE SULFATE
     Dosage: COMPLETED CYCLE 3, PART B
     Route: 065
     Dates: start: 2021, end: 202106
  14. VINCRISTINE SULFATE [Suspect]
     Active Substance: VINCRISTINE SULFATE
     Dosage: CVAD CYCLE 4 PART B
     Route: 065
     Dates: start: 202107, end: 202107
  15. CYCLOPHOSPHAMIDE [Suspect]
     Active Substance: CYCLOPHOSPHAMIDE
     Indication: B precursor type acute leukaemia
     Route: 065
     Dates: start: 201904, end: 2019
  16. CYCLOPHOSPHAMIDE [Suspect]
     Active Substance: CYCLOPHOSPHAMIDE
     Dosage: CYCLE 3 PART A WAS INTERRUPTED
     Route: 065
     Dates: start: 202102, end: 202105
  17. CYCLOPHOSPHAMIDE [Suspect]
     Active Substance: CYCLOPHOSPHAMIDE
     Dosage: COMPLETED CYCLE 3, PART B
     Route: 065
     Dates: start: 2021, end: 202106
  18. CYCLOPHOSPHAMIDE [Suspect]
     Active Substance: CYCLOPHOSPHAMIDE
     Dosage: CVAD CYCLE 4 PART B
     Route: 065
     Dates: start: 202107, end: 202107
  19. MERCAPTOPURINE [Suspect]
     Active Substance: MERCAPTOPURINE
     Indication: B precursor type acute leukaemia
     Dosage: 6-MERCAPTOPURINE
     Route: 065
     Dates: start: 201908, end: 202001
  20. DASATINIB [Suspect]
     Active Substance: DASATINIB
     Indication: B precursor type acute leukaemia
     Route: 065
     Dates: start: 2019
  21. METHOTREXATE [Suspect]
     Active Substance: METHOTREXATE
     Indication: Nervous system disorder prophylaxis
     Route: 037
     Dates: start: 201904
  22. METHOTREXATE [Suspect]
     Active Substance: METHOTREXATE
     Indication: B precursor type acute leukaemia
     Dosage: POMP REGIMEN
     Route: 065
     Dates: start: 201908, end: 202001
  23. METHOTREXATE [Suspect]
     Active Substance: METHOTREXATE
     Dosage: HIGH-DOSE
     Route: 065
     Dates: start: 202001
  24. METHOTREXATE [Suspect]
     Active Substance: METHOTREXATE
     Dosage: EVERY TWO WEEKS FOR FIVE CYCLES
     Route: 037
     Dates: start: 202001, end: 2020
  25. METHOTREXATE [Suspect]
     Active Substance: METHOTREXATE
     Dosage: RESUMED
     Route: 037
     Dates: start: 202007
  26. VINCRISTINE [Suspect]
     Active Substance: VINCRISTINE
     Indication: B precursor type acute leukaemia
     Route: 065
     Dates: start: 201908, end: 202001
  27. PREDNISONE [Suspect]
     Active Substance: PREDNISONE
     Indication: B precursor type acute leukaemia
     Route: 065
     Dates: start: 201908, end: 202001
  28. CYTARABINE [Suspect]
     Active Substance: CYTARABINE
     Indication: Nervous system disorder prophylaxis
     Route: 065
     Dates: start: 201904
  29. CYTARABINE [Suspect]
     Active Substance: CYTARABINE
     Dosage: EVERY TWO WEEKS FOR FIVE CYCLES
     Route: 065
     Dates: start: 202001, end: 2020
  30. CYTARABINE [Suspect]
     Active Substance: CYTARABINE
     Dosage: RESUMED
     Route: 065
     Dates: start: 202007
  31. MITOXANTRONE [Suspect]
     Active Substance: MITOXANTRONE HYDROCHLORIDE
     Indication: B precursor type acute leukaemia
     Dosage: ONE CYCLE
     Route: 065
     Dates: start: 202101, end: 2021
  32. ETOPOSIDE [Suspect]
     Active Substance: ETOPOSIDE
     Indication: B precursor type acute leukaemia
     Dosage: ONE CYCLE
     Route: 065
     Dates: start: 202101, end: 2021
  33. IFOSFAMIDE [Suspect]
     Active Substance: IFOSFAMIDE
     Indication: B precursor type acute leukaemia
     Dosage: ONE CYCLE
     Route: 065
     Dates: start: 202101, end: 2021

REACTIONS (7)
  - Strongyloidiasis [Recovering/Resolving]
  - Pericardial effusion [Recovering/Resolving]
  - Acute respiratory failure [Recovering/Resolving]
  - Non-cardiogenic pulmonary oedema [Recovering/Resolving]
  - Staphylococcal infection [Recovering/Resolving]
  - Toxicity to various agents [Recovering/Resolving]
  - Appendicitis [Unknown]

NARRATIVE: CASE EVENT DATE: 20210101
